FAERS Safety Report 18873187 (Version 1)
Quarter: 2021Q1

REPORT INFORMATION
  Report Type: Report from Study
  Country: CO (occurrence: CO)
  Receive Date: 20210210
  Receipt Date: 20210210
  Transmission Date: 20210420
  Serious: Yes (Life-Threatening, Other)
  Sender: FDA-Public Use
  Company Number: CO-UCBSA-2021005161

PATIENT
  Age: 45 Year
  Sex: Male

DRUGS (4)
  1. CARBIDOPA LEVODOPA [Concomitant]
     Active Substance: CARBIDOPA\LEVODOPA
     Indication: PARKINSON^S DISEASE
     Dosage: 25/250 MG
     Route: 048
  2. ROTIGOTINE [Suspect]
     Active Substance: ROTIGOTINE
     Indication: PARKINSON^S DISEASE
     Dosage: 8 MILLIGRAM, ONCE DAILY (QD)
     Route: 062
     Dates: start: 20190613, end: 20200721
  3. ROTIGOTINE [Suspect]
     Active Substance: ROTIGOTINE
     Dosage: 12 MILLIGRAM, EVERY 14 HOURS
     Route: 062
     Dates: start: 20200722, end: 20201113
  4. AMANTADINA [AMANTADINE] [Concomitant]
     Indication: PARKINSON^S DISEASE
     Dosage: 100MG
     Route: 048

REACTIONS (3)
  - Hallucination [Recovered/Resolved]
  - Suicide attempt [Unknown]
  - Product use issue [Unknown]

NARRATIVE: CASE EVENT DATE: 2020
